FAERS Safety Report 10084190 (Version 2)
Quarter: 2014Q2

REPORT INFORMATION
  Report Type: Spontaneous
  Country: AU (occurrence: AU)
  Receive Date: 20140417
  Receipt Date: 20140527
  Transmission Date: 20141212
  Serious: Yes (Life-Threatening)
  Sender: FDA-Public Use
  Company Number: AU-NOVOPROD-406476

PATIENT
  Age: 61 Year
  Sex: Female
  Weight: 52 kg

DRUGS (5)
  1. VAGIFEM [Suspect]
     Indication: PRODUCT USED FOR UNKNOWN INDICATION
     Dosage: UNK
     Route: 065
  2. VAGIFEM [Suspect]
     Dosage: 2 DOSE
     Route: 065
     Dates: start: 20140409, end: 20140411
  3. MAGNESIUM [Concomitant]
     Dosage: UNK
     Route: 065
  4. ATORVASTATIN [Concomitant]
     Dosage: UNK
     Route: 065
  5. METOPROLOL [Concomitant]
     Dosage: UNK
     Route: 065

REACTIONS (3)
  - Loss of consciousness [Recovered/Resolved]
  - Migraine [Recovered/Resolved]
  - Paraesthesia [Recovered/Resolved]
